FAERS Safety Report 6753953-0 (Version None)
Quarter: 2010Q2

REPORT INFORMATION
  Report Type: 
  Country: None (occurrence: None)
  Receive Date: 20100603
  Receipt Date: 20100526
  Transmission Date: 20101027
  Serious: Yes (Other)
  Sender: FDA-Public Use
  Company Number: A0861482A

PATIENT
  Age: 79 Year
  Sex: Female

DRUGS (1)
  1. FLOVENT [Suspect]
     Indication: BRONCHIECTASIS
     Dosage: 50MCG TWICE PER DAY
     Route: 055

REACTIONS (4)
  - HAEMOPTYSIS [None]
  - INITIAL INSOMNIA [None]
  - ORAL PAIN [None]
  - PULMONARY HAEMORRHAGE [None]
